FAERS Safety Report 26186427 (Version 1)
Quarter: 2025Q4

REPORT INFORMATION
  Report Type: Spontaneous
  Country: EU (occurrence: EU)
  Receive Date: 20251222
  Receipt Date: 20251222
  Transmission Date: 20260117
  Serious: Yes (Hospitalization)
  Sender: MYLAN
  Company Number: None

PATIENT
  Age: 1 Day
  Sex: Female
  Weight: 1.4 kg

DRUGS (32)
  1. SERTRALINE [Suspect]
     Active Substance: SERTRALINE HYDROCHLORIDE
     Indication: Psychotic disorder
     Dosage: 150 MILLIGRAM, QD
     Dates: start: 202510, end: 20251124
  2. SERTRALINE [Suspect]
     Active Substance: SERTRALINE HYDROCHLORIDE
     Dosage: 150 MILLIGRAM, QD
     Dates: start: 202510, end: 20251124
  3. SERTRALINE [Suspect]
     Active Substance: SERTRALINE HYDROCHLORIDE
     Dosage: 150 MILLIGRAM, QD
     Route: 064
     Dates: start: 202510, end: 20251124
  4. SERTRALINE [Suspect]
     Active Substance: SERTRALINE HYDROCHLORIDE
     Dosage: 150 MILLIGRAM, QD
     Route: 064
     Dates: start: 202510, end: 20251124
  5. SERTRALINE [Suspect]
     Active Substance: SERTRALINE HYDROCHLORIDE
     Dosage: 150 MILLIGRAM, QD
     Dates: start: 202510, end: 20251124
  6. SERTRALINE [Suspect]
     Active Substance: SERTRALINE HYDROCHLORIDE
     Dosage: 150 MILLIGRAM, QD
     Dates: start: 202510, end: 20251124
  7. SERTRALINE [Suspect]
     Active Substance: SERTRALINE HYDROCHLORIDE
     Dosage: 150 MILLIGRAM, QD
     Route: 064
     Dates: start: 202510, end: 20251124
  8. SERTRALINE [Suspect]
     Active Substance: SERTRALINE HYDROCHLORIDE
     Dosage: 150 MILLIGRAM, QD
     Route: 064
     Dates: start: 202510, end: 20251124
  9. RISPERIDONE [Suspect]
     Active Substance: RISPERIDONE
     Indication: Psychotic disorder
     Dosage: 3 MILLIGRAM, QD
     Dates: start: 202510, end: 20251124
  10. RISPERIDONE [Suspect]
     Active Substance: RISPERIDONE
     Dosage: 3 MILLIGRAM, QD
     Dates: start: 202510, end: 20251124
  11. RISPERIDONE [Suspect]
     Active Substance: RISPERIDONE
     Dosage: 3 MILLIGRAM, QD
     Route: 064
     Dates: start: 202510, end: 20251124
  12. RISPERIDONE [Suspect]
     Active Substance: RISPERIDONE
     Dosage: 3 MILLIGRAM, QD
     Route: 064
     Dates: start: 202510, end: 20251124
  13. RISPERIDONE [Suspect]
     Active Substance: RISPERIDONE
     Dosage: 3 MILLIGRAM, QD
     Dates: start: 202510, end: 20251124
  14. RISPERIDONE [Suspect]
     Active Substance: RISPERIDONE
     Dosage: 3 MILLIGRAM, QD
     Dates: start: 202510, end: 20251124
  15. RISPERIDONE [Suspect]
     Active Substance: RISPERIDONE
     Dosage: 3 MILLIGRAM, QD
     Route: 064
     Dates: start: 202510, end: 20251124
  16. RISPERIDONE [Suspect]
     Active Substance: RISPERIDONE
     Dosage: 3 MILLIGRAM, QD
     Route: 064
     Dates: start: 202510, end: 20251124
  17. CYAMEMAZINE [Suspect]
     Active Substance: CYAMEMAZINE
     Indication: Psychotic disorder
     Dosage: 5 MILLIGRAM, Q6H
     Dates: start: 202510, end: 20251124
  18. CYAMEMAZINE [Suspect]
     Active Substance: CYAMEMAZINE
     Dosage: 5 MILLIGRAM, Q6H
     Dates: start: 202510, end: 20251124
  19. CYAMEMAZINE [Suspect]
     Active Substance: CYAMEMAZINE
     Dosage: 5 MILLIGRAM, Q6H
     Route: 064
     Dates: start: 202510, end: 20251124
  20. CYAMEMAZINE [Suspect]
     Active Substance: CYAMEMAZINE
     Dosage: 5 MILLIGRAM, Q6H
     Route: 064
     Dates: start: 202510, end: 20251124
  21. CYAMEMAZINE [Suspect]
     Active Substance: CYAMEMAZINE
     Dosage: 5 MILLIGRAM, Q6H
     Dates: start: 202510, end: 20251124
  22. CYAMEMAZINE [Suspect]
     Active Substance: CYAMEMAZINE
     Dosage: 5 MILLIGRAM, Q6H
     Dates: start: 202510, end: 20251124
  23. CYAMEMAZINE [Suspect]
     Active Substance: CYAMEMAZINE
     Dosage: 5 MILLIGRAM, Q6H
     Route: 064
     Dates: start: 202510, end: 20251124
  24. CYAMEMAZINE [Suspect]
     Active Substance: CYAMEMAZINE
     Dosage: 5 MILLIGRAM, Q6H
     Route: 064
     Dates: start: 202510, end: 20251124
  25. TRANDATE [Suspect]
     Active Substance: LABETALOL HYDROCHLORIDE
     Indication: Hypertension
     Dosage: 200 MILLIGRAM, QD
     Dates: start: 2025, end: 20251124
  26. TRANDATE [Suspect]
     Active Substance: LABETALOL HYDROCHLORIDE
     Dosage: 200 MILLIGRAM, QD
     Dates: start: 2025, end: 20251124
  27. TRANDATE [Suspect]
     Active Substance: LABETALOL HYDROCHLORIDE
     Dosage: 200 MILLIGRAM, QD
     Route: 064
     Dates: start: 2025, end: 20251124
  28. TRANDATE [Suspect]
     Active Substance: LABETALOL HYDROCHLORIDE
     Dosage: 200 MILLIGRAM, QD
     Route: 064
     Dates: start: 2025, end: 20251124
  29. TRANDATE [Suspect]
     Active Substance: LABETALOL HYDROCHLORIDE
     Dosage: 200 MILLIGRAM, QD
     Dates: start: 2025, end: 20251124
  30. TRANDATE [Suspect]
     Active Substance: LABETALOL HYDROCHLORIDE
     Dosage: 200 MILLIGRAM, QD
     Dates: start: 2025, end: 20251124
  31. TRANDATE [Suspect]
     Active Substance: LABETALOL HYDROCHLORIDE
     Dosage: 200 MILLIGRAM, QD
     Route: 064
     Dates: start: 2025, end: 20251124
  32. TRANDATE [Suspect]
     Active Substance: LABETALOL HYDROCHLORIDE
     Dosage: 200 MILLIGRAM, QD
     Route: 064
     Dates: start: 2025, end: 20251124

REACTIONS (5)
  - Respiratory disorder [Recovering/Resolving]
  - Constipation [Recovering/Resolving]
  - Foetal growth restriction [Recovering/Resolving]
  - Tremor [Recovering/Resolving]
  - Maternal exposure during pregnancy [Recovered/Resolved]

NARRATIVE: CASE EVENT DATE: 20251124
